FAERS Safety Report 14119853 (Version 1)
Quarter: 2017Q4

REPORT INFORMATION
  Report Type: Spontaneous
  Country: US (occurrence: US)
  Receive Date: 20171024
  Receipt Date: 20171024
  Transmission Date: 20180321
  Serious: Yes (Hospitalization)
  Sender: FDA-Public Use
  Company Number: US-LPDUSPRD-20171440

PATIENT
  Age: 54 Year
  Sex: Male

DRUGS (2)
  1. GEMCITABINE [Suspect]
     Active Substance: GEMCITABINE\GEMCITABINE HYDROCHLORIDE
     Dosage: UNKNOWN
     Route: 065
  2. TAXOL [Suspect]
     Active Substance: PACLITAXEL
     Dosage: UNKNOWN
     Route: 065

REACTIONS (5)
  - Myocardial infarction [Unknown]
  - Pulmonary embolism [Unknown]
  - Bone marrow failure [Unknown]
  - Thrombocytopenia [Unknown]
  - Vascular stent thrombosis [Unknown]
